FAERS Safety Report 7669644-8 (Version None)
Quarter: 2011Q3

REPORT INFORMATION
  Report Type: 
  Country: None (occurrence: None)
  Receive Date: 20110808
  Receipt Date: 20110728
  Transmission Date: 20111222
  Serious: Yes (Other)
  Sender: FDA-Public Use
  Company Number: PHHY2011JP69316

PATIENT
  Age: 54 Year
  Sex: Male

DRUGS (3)
  1. CYCLOSPORINE [Suspect]
     Indication: INTERSTITIAL LUNG DISEASE
     Dosage: 225 MG, DAILY
  2. CYCLOSPORINE [Suspect]
     Indication: DERMATOMYOSITIS
  3. CYCLOPHOSPHAMIDE [Concomitant]

REACTIONS (1)
  - DIABETES MELLITUS [None]
